FAERS Safety Report 14759069 (Version 2)
Quarter: 2018Q2

REPORT INFORMATION
  Report Type: Report from Study
  Country: CA (occurrence: CA)
  Receive Date: 20180413
  Receipt Date: 20180415
  Transmission Date: 20180711
  Serious: Yes (Other)
  Sender: FDA-Public Use
  Company Number: PHHY2018CA061810

PATIENT
  Sex: Male

DRUGS (1)
  1. GILENYA [Suspect]
     Active Substance: FINGOLIMOD HYDROCHLORIDE
     Indication: RELAPSING-REMITTING MULTIPLE SCLEROSIS
     Dosage: 0.5 MG, QD
     Route: 048
     Dates: start: 20130306

REACTIONS (6)
  - Myoclonic epilepsy [Unknown]
  - Muscular weakness [Recovering/Resolving]
  - Feeling abnormal [Unknown]
  - Sleep disorder [Unknown]
  - Multiple sclerosis relapse [Recovering/Resolving]
  - Pain in extremity [Unknown]
